FAERS Safety Report 17849817 (Version 11)
Quarter: 2020Q4

REPORT INFORMATION
  Report Type: Spontaneous
  Country: US (occurrence: US)
  Receive Date: 20200602
  Receipt Date: 20201228
  Transmission Date: 20210113
  Serious: Yes (Other)
  Sender: FDA-Public Use
  Company Number: US-PFIZER INC-2020147622

PATIENT
  Age: 75 Year
  Sex: Male
  Weight: 63 kg

DRUGS (6)
  1. INLYTA [Suspect]
     Active Substance: AXITINIB
     Dosage: 6 MG, 2X/DAY
     Route: 048
  2. INLYTA [Suspect]
     Active Substance: AXITINIB
     Dosage: 5 MG, 2X/DAY(5MG 1 TABLET BY MOUTH TWICE A DAY)
     Route: 048
     Dates: start: 2019
  3. INLYTA [Suspect]
     Active Substance: AXITINIB
     Indication: RENAL CANCER METASTATIC
     Dosage: 10 MG, 2X/DAY (TAKE 2 TABLETS EVERY 12 HOURS WITH FULL GLASS OF WATER)
     Route: 048
  4. INLYTA [Suspect]
     Active Substance: AXITINIB
     Dosage: 2 MG, 2X/DAY (1MG 2 TABLETS BY MOUTH TWICE A DAY)
     Route: 048
     Dates: start: 2019
  5. KEYTRUDA [Concomitant]
     Active Substance: PEMBROLIZUMAB
     Dosage: UNK, EVERY 3 WEEKS (ONCE EVERY 3 WEEKS)
     Route: 042
  6. INLYTA [Suspect]
     Active Substance: AXITINIB
     Dosage: 7 MG, 2X/DAY (1MG 2 TABLETS TWICE A DAY/ TAKES IT ALONG WITH THE 5MG DOSE TO EQUAL 7MG TWICE A DAY)

REACTIONS (2)
  - Rash morbilliform [Recovered/Resolved]
  - Hypoacusis [Unknown]

NARRATIVE: CASE EVENT DATE: 2019
